FAERS Safety Report 11029285 (Version 1)
Quarter: 2015Q2

REPORT INFORMATION
  Report Type: Spontaneous
  Country: ES (occurrence: ES)
  Receive Date: 20150415
  Receipt Date: 20150415
  Transmission Date: 20150821
  Serious: Yes (Hospitalization, Other)
  Sender: FDA-Public Use
  Company Number: ES-ABBVIE-15K-144-1372511-00

PATIENT
  Age: 38 Year
  Sex: Female

DRUGS (6)
  1. METILPREDNISOLONE [Concomitant]
     Active Substance: METHYLPREDNISOLONE
     Indication: PSORIASIS
     Route: 061
  2. HUMIRA [Suspect]
     Active Substance: ADALIMUMAB
     Indication: PSORIASIS
     Route: 058
     Dates: start: 20120613, end: 201502
  3. HUMIRA [Suspect]
     Active Substance: ADALIMUMAB
     Route: 058
     Dates: start: 20150225
  4. FERROGLYCINE SULFATE [Concomitant]
     Active Substance: FERROGLYCINE SULFATE
     Indication: IRON DEFICIENCY ANAEMIA
     Route: 048
  5. GINE CANESTEN [Concomitant]
     Indication: VULVOVAGINAL CANDIDIASIS
     Dosage: 20 MG/GR
     Route: 061
  6. CICLOPIROX OLAMINA CAPITEC [Concomitant]
     Indication: SEBORRHOEIC DERMATITIS
     Dosage: 15 MG/G
     Route: 061

REACTIONS (2)
  - Acute kidney injury [Recovered/Resolved]
  - Escherichia sepsis [Recovered/Resolved]

NARRATIVE: CASE EVENT DATE: 201502
